FAERS Safety Report 4384830-0 (Version None)
Quarter: 2004Q2

REPORT INFORMATION
  Report Type: 
  Country: None (occurrence: None)
  Receive Date: 20040621
  Receipt Date: 20040608
  Transmission Date: 20050107
  Serious: Yes (Other)
  Sender: FDA-Public Use
  Company Number: HQWYE397809JUN04

PATIENT
  Age: 68 Year
  Sex: Male

DRUGS (4)
  1. EFFEXOR XR [Suspect]
     Indication: DEPRESSION
     Dosage: 225 MG 1X PER 1 DAY ORAL
     Route: 048
     Dates: start: 20030319, end: 20040308
  2. ZYPREXA [Concomitant]
  3. BUPROPION (AMFEBUTAMONE) [Concomitant]
  4. PHENYTOIN [Concomitant]

REACTIONS (2)
  - CUSHING'S SYNDROME [None]
  - HEPATITIS C [None]
